FAERS Safety Report 4819501-7 (Version None)
Quarter: 2005Q4

REPORT INFORMATION
  Report Type: 
  Country: None (occurrence: None)
  Receive Date: 20051031
  Receipt Date: 20050601
  Transmission Date: 20060501
  Serious: No
  Sender: FDA-Public Use
  Company Number: 2005PV000007

PATIENT
  Sex: Female

DRUGS (5)
  1. SYMLIN [Suspect]
     Indication: DIABETES MELLITUS INSULIN-DEPENDENT
     Dosage: 15 UG; TID; SC
     Route: 058
     Dates: start: 20050531
  2. HUMLAOG [Concomitant]
  3. LANTUS [Concomitant]
  4. REGULAR INSULIN [Concomitant]
  5. ASPIRIN [Concomitant]

REACTIONS (3)
  - DRY MOUTH [None]
  - FATIGUE [None]
  - NAUSEA [None]
